FAERS Safety Report 13954131 (Version 1)
Quarter: 2017Q3

REPORT INFORMATION
  Report Type: Spontaneous
  Country: ZA (occurrence: ZA)
  Receive Date: 20170911
  Receipt Date: 20170911
  Transmission Date: 20171128
  Serious: No
  Sender: FDA-Public Use
  Company Number: ZA-LUPIN PHARMACEUTICALS INC.-2017-01872

PATIENT
  Sex: Female

DRUGS (5)
  1. CALCIFEROL [Suspect]
     Active Substance: ERGOCALCIFEROL
     Indication: VITAMIN SUPPLEMENTATION
     Dosage: 50000 IU, QD (DAILY)
     Route: 048
     Dates: start: 20161017
  2. FLEXOCAM 15 MG [Suspect]
     Active Substance: MELOXICAM
     Indication: PAIN
     Dosage: 15 MG, QD (DAILY)
     Route: 048
     Dates: start: 20161017
  3. ADCO-BISOCOR [Suspect]
     Active Substance: BISOPROLOL FUMARATE
     Indication: HYPERTENSION
     Dosage: 10 MG, QD (DAILY)
     Route: 048
     Dates: start: 20161017
  4. TRANQIPAM [Suspect]
     Active Substance: LORAZEPAM
     Indication: STRESS
     Dosage: 1 MG, QD (DAILY)
     Route: 048
     Dates: start: 20161017
  5. EXFORGE [Suspect]
     Active Substance: AMLODIPINE BESYLATE\VALSARTAN
     Indication: HYPERTENSION
     Dosage: 5/160 MG, DAILY
     Route: 048
     Dates: start: 20161017

REACTIONS (1)
  - Dyspepsia [Unknown]
